FAERS Safety Report 5798886-1 (Version None)
Quarter: 2008Q3

REPORT INFORMATION
  Report Type: 
  Country: None (occurrence: None)
  Receive Date: 20080702
  Receipt Date: 20080626
  Transmission Date: 20090109
  Serious: Yes (Hospitalization, Other)
  Sender: FDA-Public Use
  Company Number: US-MERCK-0704USA05721

PATIENT
  Age: 51 Year
  Sex: Female

DRUGS (3)
  1. FOSAMAX [Suspect]
     Indication: OSTEOPOROSIS
     Route: 048
     Dates: start: 20060106, end: 20060913
  2. PROZAC [Concomitant]
     Indication: DEPRESSION
     Route: 065
     Dates: start: 19880101
  3. HORMONES (UNSPECIFIED) [Concomitant]
     Route: 065
     Dates: start: 19810101

REACTIONS (10)
  - ADVERSE EVENT [None]
  - CLOSTRIDIUM DIFFICILE COLITIS [None]
  - DENTAL CARIES [None]
  - DIARRHOEA [None]
  - GINGIVAL ABSCESS [None]
  - HOT FLUSH [None]
  - OSTEONECROSIS [None]
  - PAIN IN JAW [None]
  - TREMOR [None]
  - VISION BLURRED [None]
